FAERS Safety Report 7350354-1 (Version None)
Quarter: 2011Q1

REPORT INFORMATION
  Report Type: 
  Country: None (occurrence: None)
  Receive Date: 20110222
  Receipt Date: 20101116
  Transmission Date: 20110831
  Serious: No
  Sender: FDA-Public Use
  Company Number: 017540

PATIENT
  Sex: Female

DRUGS (7)
  1. DIGOXIN [Concomitant]
  2. ZONEGRAN [Concomitant]
  3. COZAAR [Concomitant]
  4. LACOSAMIDE [Suspect]
     Indication: CONVULSION
     Dosage: (50 MG BID ORAL), (100 MG BID ORAL)
     Route: 048
     Dates: start: 20100601, end: 20100811
  5. LACOSAMIDE [Suspect]
     Indication: CONVULSION
     Dosage: (50 MG BID ORAL), (100 MG BID ORAL)
     Route: 048
     Dates: start: 20100812, end: 20100820
  6. COUMADIN [Concomitant]
  7. PREDNISONE [Concomitant]

REACTIONS (1)
  - HYPERSEXUALITY [None]
